FAERS Safety Report 23229857 (Version 1)
Quarter: 2023Q4

REPORT INFORMATION
  Report Type: Spontaneous
  Country: None (occurrence: CN)
  Receive Date: 20231127
  Receipt Date: 20231127
  Transmission Date: 20240110
  Serious: Yes (Other)
  Sender: FDA-Public Use
  Company Number: CN-Jiangsu Hansoh Pharmaceutical Co., Ltd-2148708

PATIENT
  Sex: Male

DRUGS (2)
  1. GEMCITABINE [Suspect]
     Active Substance: GEMCITABINE
     Indication: Nasopharyngeal cancer metastatic
     Route: 041
     Dates: start: 20230519, end: 20230519
  2. CISPLATIN [Suspect]
     Active Substance: CISPLATIN
     Route: 041
     Dates: start: 20230519, end: 20230519

REACTIONS (6)
  - Neutrophil count decreased [Recovered/Resolved]
  - Hypothyroidism [Unknown]
  - Blood creatinine increased [Unknown]
  - Anaemia [Unknown]
  - Platelet count decreased [Recovered/Resolved]
  - White blood cell count decreased [Recovered/Resolved]

NARRATIVE: CASE EVENT DATE: 20230607
